FAERS Safety Report 5939020-4 (Version None)
Quarter: 2008Q4

REPORT INFORMATION
  Report Type: 
  Country: None (occurrence: None)
  Receive Date: 20081103
  Receipt Date: 20081023
  Transmission Date: 20090506
  Serious: Yes (Other)
  Sender: FDA-Public Use
  Company Number: DE-JNJFOC-20080901570

PATIENT
  Sex: Male
  Weight: 110 kg

DRUGS (3)
  1. INVEGA [Suspect]
     Indication: DRUG USE FOR UNKNOWN INDICATION
     Route: 048
  2. OLANZAPINE [Concomitant]
     Route: 048
  3. OLANZAPINE [Concomitant]
     Route: 048

REACTIONS (1)
  - DIABETES INSIPIDUS [None]
